FAERS Safety Report 10219489 (Version 2)
Quarter: 2014Q3

REPORT INFORMATION
  Report Type: Spontaneous
  Country: BR (occurrence: BR)
  Receive Date: 20140605
  Receipt Date: 20140717
  Transmission Date: 20150326
  Serious: Yes (Hospitalization)
  Sender: FDA-Public Use
  Company Number: BR-SA-2014SA069802

PATIENT
  Sex: Female
  Weight: 64 kg

DRUGS (2)
  1. DEVICE NOS [Concomitant]
     Active Substance: DEVICE
  2. LANTUS [Suspect]
     Active Substance: INSULIN GLARGINE
     Indication: TYPE 1 DIABETES MELLITUS
     Dosage: STRENGTH AND FORM: 3 ML CARTRIDGE
     Route: 058
     Dates: start: 2013

REACTIONS (5)
  - Depression [Unknown]
  - Blood glucose fluctuation [Unknown]
  - Syncope [Unknown]
  - Hyperhidrosis [Unknown]
  - Investigation [Unknown]
